FAERS Safety Report 15560798 (Version 1)
Quarter: 2018Q4

REPORT INFORMATION
  Report Type: Report from Study
  Country: None (occurrence: US)
  Receive Date: 20181029
  Receipt Date: 20181029
  Transmission Date: 20190205
  Serious: Yes (Hospitalization, Other)
  Sender: FDA-Public Use
  Company Number: US-ABBVIE-18K-163-2531410-00

PATIENT
  Age: 74 Year
  Sex: Female
  Weight: 74 kg

DRUGS (1)
  1. HUMIRA [Suspect]
     Active Substance: ADALIMUMAB
     Indication: CROHN^S DISEASE
     Route: 058
     Dates: start: 201611

REACTIONS (8)
  - Transient ischaemic attack [Recovered/Resolved]
  - Logorrhoea [Recovered/Resolved]
  - Abscess limb [Recovered/Resolved]
  - Muscular weakness [Recovered/Resolved]
  - Staphylococcal infection [Recovered/Resolved]
  - Malaise [Recovered/Resolved]
  - Furuncle [Unknown]
  - Fungal skin infection [Recovered/Resolved]

NARRATIVE: CASE EVENT DATE: 2018
